FAERS Safety Report 17163619 (Version 1)
Quarter: 2019Q4

REPORT INFORMATION
  Report Type: Spontaneous
  Country: HR (occurrence: HR)
  Receive Date: 20191217
  Receipt Date: 20191217
  Transmission Date: 20200122
  Serious: Yes (Other)
  Sender: FDA-Public Use
  Company Number: HR-PFIZER INC-2019543316

PATIENT
  Age: 77 Year
  Sex: Female

DRUGS (7)
  1. ATORVASTATIN CALCIUM. [Suspect]
     Active Substance: ATORVASTATIN CALCIUM
     Dosage: 40 MG, UNK
  2. BISOPROLOL/PERINDOPRIL [Suspect]
     Active Substance: BISOPROLOL\PERINDOPRIL
     Dosage: UNK
  3. AMIODARONE HCL [Suspect]
     Active Substance: AMIODARONE HYDROCHLORIDE
     Dosage: 200 MG, UNK
  4. CARBAMAZEPINE. [Suspect]
     Active Substance: CARBAMAZEPINE
     Dosage: 100 MG, UNK
  5. INSULIN [Suspect]
     Active Substance: INSULIN NOS
     Dosage: AS RECOMMENDED
  6. TAMOXIFEN CITRATE. [Suspect]
     Active Substance: TAMOXIFEN CITRATE
     Dosage: 20 MG, UNK
  7. RIVAROXABAN [Suspect]
     Active Substance: RIVAROXABAN
     Dosage: 20 MG, UNK

REACTIONS (1)
  - Myocardial ischaemia [Unknown]
